FAERS Safety Report 4841512-6 (Version None)
Quarter: 2005Q4

REPORT INFORMATION
  Report Type: 
  Country: None (occurrence: None)
  Receive Date: 20051130
  Receipt Date: 20050811
  Transmission Date: 20060501
  Serious: No
  Sender: FDA-Public Use
  Company Number: US-GLAXOSMITHKLINE-A0569812A

PATIENT
  Age: 65 Year
  Sex: Male

DRUGS (7)
  1. WELLBUTRIN XL [Suspect]
     Indication: DEPRESSION
     Dosage: 300MG PER DAY
     Route: 048
     Dates: start: 20050801
  2. DETROL LA [Concomitant]
  3. ZOCOR [Concomitant]
  4. TOPROL-XL [Concomitant]
  5. PLAVIX [Concomitant]
  6. ASPIRIN [Concomitant]
  7. NAPROXEN SODIUM [Concomitant]

REACTIONS (3)
  - ARTHRALGIA [None]
  - MYALGIA [None]
  - PAIN IN EXTREMITY [None]
